FAERS Safety Report 12784622 (Version 2)
Quarter: 2016Q4

REPORT INFORMATION
  Report Type: Spontaneous
  Country: RU (occurrence: RU)
  Receive Date: 20160927
  Receipt Date: 20161107
  Transmission Date: 20170207
  Serious: Yes (Hospitalization, Other)
  Sender: FDA-Public Use
  Company Number: RU-BAYER-2016-023554

PATIENT
  Age: 46 Year
  Sex: Female
  Weight: 69.98 kg

DRUGS (7)
  1. MIRENA [Suspect]
     Active Substance: LEVONORGESTREL
     Indication: ADENOMYOSIS
     Dosage: 20 MCG/24HR, CONT
     Route: 015
     Dates: start: 20141121, end: 20160322
  2. NORCOLUT [Concomitant]
     Indication: ADENOMYOSIS
     Dosage: 5 MG, BID
  3. MICROGYNON [Suspect]
     Active Substance: ETHINYL ESTRADIOL\LEVONORGESTREL ACETATE
     Indication: CONTRACEPTION
     Dosage: 1 DF, QD
     Route: 048
     Dates: start: 201606, end: 201607
  4. JEANINE [Suspect]
     Active Substance: DIENOGEST\ETHINYL ESTRADIOL
     Dosage: UNK
     Route: 048
  5. MIRENA [Suspect]
     Active Substance: LEVONORGESTREL
     Indication: MENOMETRORRHAGIA
  6. MIRENA [Suspect]
     Active Substance: LEVONORGESTREL
     Indication: CONTRACEPTION
     Dosage: 20 MCG/24HR, CONT
     Route: 015
     Dates: start: 2008, end: 2012
  7. XARELTO [Suspect]
     Active Substance: RIVAROXABAN
     Indication: ABNORMAL CLOTTING FACTOR

REACTIONS (15)
  - Atrial fibrillation [None]
  - Pregnancy with contraceptive device [Recovered/Resolved]
  - Genital haemorrhage [Recovered/Resolved]
  - Heart rate decreased [None]
  - Loss of consciousness [None]
  - Product quality issue [None]
  - Transient ischaemic attack [None]
  - Off label use [None]
  - Drug ineffective [None]
  - Uterine enlargement [None]
  - Menometrorrhagia [None]
  - Menorrhagia [None]
  - Product use issue [None]
  - Abortion missed [Recovered/Resolved]
  - Uterine polyp [None]

NARRATIVE: CASE EVENT DATE: 201411
